FAERS Safety Report 7003891-3 (Version None)
Quarter: 2010Q3

REPORT INFORMATION
  Report Type: 
  Country: None (occurrence: None)
  Receive Date: 20100920
  Receipt Date: 20091215
  Transmission Date: 20110219
  Serious: No
  Sender: FDA-Public Use
  Company Number: US-WYE-H12656409

PATIENT
  Sex: Female
  Weight: 77.18 kg

DRUGS (5)
  1. PROTONIX [Suspect]
     Indication: GASTROOESOPHAGEAL REFLUX DISEASE
     Route: 048
     Dates: start: 20091115
  2. NEURONTIN [Concomitant]
  3. HYDROCHLOROTHIAZIDE [Concomitant]
  4. AVAPRO [Concomitant]
  5. ESTRACE [Concomitant]

REACTIONS (1)
  - HAIR COLOUR CHANGES [None]
